FAERS Safety Report 22539007 (Version 5)
Quarter: 2024Q3

REPORT INFORMATION
  Report Type: Report from Study
  Country: US (occurrence: US)
  Receive Date: 20230609
  Receipt Date: 20240829
  Transmission Date: 20241017
  Serious: Yes (Other)
  Sender: NOVARTIS
  Company Number: US-002147023-NVSC2023US126445

PATIENT
  Sex: Female
  Weight: 96.62 kg

DRUGS (8)
  1. METHOTREXATE [Suspect]
     Active Substance: METHOTREXATE
     Indication: Product used for unknown indication
     Dosage: UNK
     Route: 065
  2. COSENTYX [Suspect]
     Active Substance: SECUKINUMAB
     Indication: Psoriasis
     Dosage: 300 MG, QW, LOADING DOSE: WEEK 0, 1, 2, 3
     Route: 058
  3. COSENTYX [Suspect]
     Active Substance: SECUKINUMAB
     Dosage: 300 MG, MAINTENANCE: WEEK 4, EVERY 4 WEEKS
     Route: 058
  4. CLINDAMYCIN [Suspect]
     Active Substance: CLINDAMYCIN
     Indication: Psoriasis
     Dosage: UNK
     Route: 065
  5. KETOCONAZOLE [Suspect]
     Active Substance: KETOCONAZOLE
     Indication: Psoriasis
     Dosage: UNK
     Route: 065
  6. ADAPALENE [Suspect]
     Active Substance: ADAPALENE
     Indication: Product used for unknown indication
     Dosage: UNK
     Route: 065
  7. ECONAZOLE [Suspect]
     Active Substance: ECONAZOLE
     Indication: Product used for unknown indication
     Dosage: UNK
     Route: 065
  8. TRETINOIN [Suspect]
     Active Substance: TRETINOIN
     Indication: Product used for unknown indication
     Dosage: UNK
     Route: 065

REACTIONS (7)
  - Blood glucose increased [Unknown]
  - Psoriasis [Unknown]
  - Tinea versicolour [Unknown]
  - Neoplasm [Unknown]
  - Carbon dioxide decreased [Unknown]
  - Product use in unapproved indication [Unknown]
  - Treatment failure [Unknown]
